FAERS Safety Report 20864534 (Version 1)
Quarter: 2022Q2

REPORT INFORMATION
  Report Type: Spontaneous
  Country: ES (occurrence: ES)
  Receive Date: 20220524
  Receipt Date: 20220524
  Transmission Date: 20220720
  Serious: Yes (Life-Threatening, Hospitalization)
  Sender: FDA-Public Use
  Company Number: ES-AEMPS-1172582

PATIENT
  Age: 57 Year
  Sex: Female

DRUGS (1)
  1. MORPHINE [Suspect]
     Active Substance: MORPHINE
     Indication: Analgesic therapy
     Dosage: UNK
     Route: 042
     Dates: start: 20220421, end: 20220421

REACTIONS (4)
  - Coma [Unknown]
  - Oxygen saturation decreased [Unknown]
  - Medication error [Unknown]
  - Apnoea [Unknown]

NARRATIVE: CASE EVENT DATE: 20220421
